FAERS Safety Report 13188211 (Version 1)
Quarter: 2017Q1

REPORT INFORMATION
  Report Type: Spontaneous
  Country: US (occurrence: US)
  Receive Date: 20170203
  Receipt Date: 20170203
  Transmission Date: 20170428
  Serious: No
  Sender: FDA-Public Use
  Company Number: None

PATIENT
  Age: 55 Year
  Sex: Female
  Weight: 65.25 kg

DRUGS (11)
  1. VITAMIN D [Concomitant]
     Active Substance: CHOLECALCIFEROL
  2. PROPRANOLOL [Concomitant]
     Active Substance: PROPRANOLOL HYDROCHLORIDE
  3. CYMBALTA [Concomitant]
     Active Substance: DULOXETINE HYDROCHLORIDE
  4. RECLAST [Concomitant]
     Active Substance: ZOLEDRONIC ACID
  5. PRAVASTATIN. [Concomitant]
     Active Substance: PRAVASTATIN
  6. MYRBETRIQ [Suspect]
     Active Substance: MIRABEGRON
     Indication: BLADDER DISORDER
     Dosage: ?          QUANTITY:1 TABLET(S);?
     Route: 048
     Dates: start: 20170101, end: 20170121
  7. TEGRETAL [Concomitant]
     Active Substance: CARBAMAZEPINE
  8. AUBAGIO [Concomitant]
     Active Substance: TERIFLUNOMIDE
  9. BACLOFEN. [Concomitant]
     Active Substance: BACLOFEN
  10. PROMIPEXOLE [Concomitant]
  11. VIT B-12 [Concomitant]

REACTIONS (5)
  - Oedema [None]
  - Multiple sclerosis [None]
  - Diarrhoea [None]
  - Cystitis [None]
  - Drug ineffective [None]

NARRATIVE: CASE EVENT DATE: 20170121
